FAERS Safety Report 4381596-5 (Version None)
Quarter: 2004Q2

REPORT INFORMATION
  Report Type: 
  Country: None (occurrence: None)
  Receive Date: 20040615
  Receipt Date: 20040607
  Transmission Date: 20050107
  Serious: Yes (Hospitalization)
  Sender: FDA-Public Use
  Company Number: HQWYE081624MAY04

PATIENT
  Age: 53 Year
  Sex: Female
  Weight: 70.1 kg

DRUGS (13)
  1. MYLOTARG [Suspect]
     Indication: ACUTE MYELOID LEUKAEMIA
     Dosage: 15 MG 1X PER 1 DAY, INTRAVENOUS
     Route: 042
     Dates: start: 20040503, end: 20040503
  2. LEXAPRO [Concomitant]
  3. ACYCLOVIR [Concomitant]
  4. SODIUM CHLORIDE [Concomitant]
  5. POLYVINYL ALCOHOL (POLYVINYL ALCOHOL) [Concomitant]
  6. PHENERGAN [Concomitant]
  7. OXYCONTIN (PXYCODONE HYDROCHLORIDE) [Concomitant]
  8. OXYCODONE HCL [Concomitant]
  9. VANCOMYCIN [Concomitant]
  10. ZOSYN (PIPERACILLN/TAZOBACTAM) [Concomitant]
  11. SCOPOLAMINE (HYOSCINE) [Concomitant]
  12. PROTONIX [Concomitant]
  13. DIFLUCAN [Concomitant]

REACTIONS (11)
  - BACK PAIN [None]
  - CHEST WALL PAIN [None]
  - CHILLS [None]
  - CONDITION AGGRAVATED [None]
  - FATIGUE [None]
  - INSOMNIA [None]
  - MARKEDLY REDUCED DIETARY INTAKE [None]
  - MYALGIA [None]
  - NAUSEA [None]
  - PYREXIA [None]
  - VOMITING [None]
